FAERS Safety Report 20979071 (Version 4)
Quarter: 2022Q3

REPORT INFORMATION
  Report Type: Spontaneous
  Country: DE (occurrence: DE)
  Receive Date: 20220619
  Receipt Date: 20220829
  Transmission Date: 20221027
  Serious: Yes (Hospitalization, Other)
  Sender: FDA-Public Use
  Company Number: DE-VELOXIS PHARMACEUTICALS-2022VELDE-000261

PATIENT
  Age: 46 Year
  Sex: Male

DRUGS (24)
  1. ARANESP [Suspect]
     Active Substance: DARBEPOETIN ALFA
     Indication: Prophylaxis against transplant rejection
     Dosage: 60 MICROGRAM, QD
     Route: 065
     Dates: start: 202010, end: 202105
  2. ENVARSUS XR [Suspect]
     Active Substance: TACROLIMUS
     Indication: Prophylaxis against transplant rejection
     Dosage: 12 MILLIGRAM, QD
     Route: 048
     Dates: start: 202010
  3. ENVARSUS XR [Suspect]
     Active Substance: TACROLIMUS
     Dosage: 0.75 MILLIGRAM, 3 TIMES/WK
     Route: 065
     Dates: start: 202105
  4. ENVARSUS XR [Suspect]
     Active Substance: TACROLIMUS
     Dosage: 1 MILLIGRAM, 1 MILLIGRAM, EVERY SECOND DAY
     Route: 065
     Dates: start: 202108
  5. ENVARSUS XR [Suspect]
     Active Substance: TACROLIMUS
     Dosage: 2.25 MILLIGRAM, QWK; 0.75 MILLIGRAM, 3 TIMES/WK
     Route: 048
     Dates: end: 20220621
  6. ENVARSUS XR [Suspect]
     Active Substance: TACROLIMUS
     Dosage: 1 MILLIGRAM, 1 MILLIGRAM, EVERY SECOND DAY
     Route: 065
     Dates: start: 202105
  7. ENVARSUS XR [Suspect]
     Active Substance: TACROLIMUS
     Dosage: 2.25 MILLIGRAM, QWK; 0.75 MILLIGRAM, 3 TIMES/WK
     Route: 048
     Dates: end: 20220629
  8. ENVARSUS XR [Suspect]
     Active Substance: TACROLIMUS
     Dosage: 4 MILLIGRAM
     Route: 065
  9. ENVARSUS XR [Suspect]
     Active Substance: TACROLIMUS
     Dosage: 6 MILLIGRAM, QD
     Route: 065
     Dates: start: 202105
  10. METHYLPREDNISOLONE [Suspect]
     Active Substance: METHYLPREDNISOLONE
     Indication: Prophylaxis against transplant rejection
     Dosage: 4 MILLIGRAM, QD
     Route: 065
     Dates: start: 202010
  11. MYFORTIC [Suspect]
     Active Substance: MYCOPHENOLATE SODIUM
     Indication: Prophylaxis against transplant rejection
     Dosage: 540 MILLIGRAM, QD
     Route: 065
     Dates: start: 202010
  12. DAPAGLIFLOZIN [Concomitant]
     Active Substance: DAPAGLIFLOZIN
     Indication: Diuretic therapy
     Dosage: 10 MILLIGRAM
  13. SODIUM BICARBONATE [Concomitant]
     Active Substance: SODIUM BICARBONATE
     Indication: Antacid therapy
     Dosage: 2 GRAM
     Dates: start: 202010
  14. CARVEDILOL [Concomitant]
     Active Substance: CARVEDILOL
     Indication: Blood pressure measurement
     Dosage: 50 MILLIGRAM
  15. CANDESARTAN CILEXETIL\HYDROCHLOROTHIAZIDE [Concomitant]
     Active Substance: CANDESARTAN CILEXETIL\HYDROCHLOROTHIAZIDE
     Indication: Blood pressure measurement
     Dosage: 32 MILLIGRAM
  16. PANTOPRAZOLE [Concomitant]
     Active Substance: PANTOPRAZOLE
     Indication: Product used for unknown indication
     Dosage: 20 MILLIGRAM, TUESDAY-THURSDAY-SATURDAY-SUNDAY
     Dates: start: 202010
  17. TAMSULOSIN [Concomitant]
     Active Substance: TAMSULOSIN
     Indication: Prostate infection
     Dosage: 0.4 MILLIGRAM
  18. MOXONIDINE [Concomitant]
     Active Substance: MOXONIDINE
     Indication: Blood pressure measurement
     Dosage: 0.6 MILLIGRAM
  19. Carmen [Concomitant]
     Indication: Blood pressure measurement
     Dosage: 20 MILLIGRAM
  20. CHOLECALCIFEROL [Concomitant]
     Active Substance: CHOLECALCIFEROL
     Indication: Product used for unknown indication
     Dosage: UNK, EVERY UNEVEN WEEK ON MONDAY
  21. FOLIC ACID [Concomitant]
     Active Substance: FOLIC ACID
     Indication: Product used for unknown indication
     Dosage: 5 MILLIGRAM
  22. TORSEMIDE [Concomitant]
     Active Substance: TORSEMIDE
     Indication: Diuretic therapy
     Dosage: 30 MILLIGRAM
     Dates: start: 202010
  23. CLONIDINE HYDROCHLORIDE [Concomitant]
     Active Substance: CLONIDINE HYDROCHLORIDE
     Indication: Blood pressure measurement
     Dosage: 250 MILLIGRAM
  24. BENZBROMARON AL [Concomitant]
     Indication: Blood uric acid increased
     Dosage: 100 MILLIGRAM

REACTIONS (5)
  - Blood pressure increased [Recovered/Resolved]
  - Anal abscess [Recovered/Resolved]
  - Transplant rejection [Recovered/Resolved]
  - Fluid retention [Recovered/Resolved]
  - Off label use [Not Recovered/Not Resolved]

NARRATIVE: CASE EVENT DATE: 20210501
